FAERS Safety Report 6159956-1 (Version None)
Quarter: 2009Q2

REPORT INFORMATION
  Report Type: 
  Country: None (occurrence: None)
  Receive Date: 20090420
  Receipt Date: 20090410
  Transmission Date: 20091009
  Serious: Yes (Hospitalization)
  Sender: FDA-Public Use
  Company Number: FR-ROCHE-625338

PATIENT
  Sex: Female
  Weight: 41 kg

DRUGS (11)
  1. METHOXY POLYETHYLENE GLYCOL-EPOETIN BETA [Suspect]
     Dosage: FORM: PFS.
     Route: 065
  2. CALCIUM CARBONATE [Concomitant]
     Dates: start: 20040520
  3. RENAGEL [Concomitant]
     Dates: start: 20040520, end: 20061211
  4. DEROXAT [Concomitant]
     Dates: start: 20070620
  5. FOSRENOL [Concomitant]
     Dates: start: 20070101
  6. DIDRONEL [Concomitant]
     Dates: start: 20080927
  7. SIMVASTATIN [Concomitant]
     Dates: start: 20070507
  8. TRIATEC [Concomitant]
     Dates: start: 20080516
  9. UN ALFA [Concomitant]
     Dates: start: 20070402
  10. NEXIUM [Concomitant]
     Dates: start: 20071015
  11. VALPROIC ACID [Concomitant]
     Dosage: DRUG NAME: DEPAMINE VALPROIC ACID
     Dates: start: 19990301

REACTIONS (1)
  - LUNG INFECTION [None]
